FAERS Safety Report 21048745 (Version 2)
Quarter: 2022Q3

REPORT INFORMATION
  Report Type: Spontaneous
  Country: AR (occurrence: AR)
  Receive Date: 20220706
  Receipt Date: 20220719
  Transmission Date: 20221027
  Serious: Yes (Other)
  Sender: FDA-Public Use
  Company Number: AR-BAYER-2022A093259

PATIENT
  Age: 72 Year
  Sex: Male
  Weight: 90 kg

DRUGS (6)
  1. XOFIGO [Suspect]
     Active Substance: RADIUM RA-223 DICHLORIDE
     Indication: Prostate cancer
     Dosage: UNK
     Dates: start: 20210810, end: 20210810
  2. XOFIGO [Suspect]
     Active Substance: RADIUM RA-223 DICHLORIDE
     Indication: Prostate cancer
     Dosage: UNK
     Dates: start: 20210927, end: 20210927
  3. XOFIGO [Suspect]
     Active Substance: RADIUM RA-223 DICHLORIDE
     Indication: Prostate cancer
     Dosage: UNK
     Dates: start: 20220314, end: 20220314
  4. LEUPROLIDE ACETATE [Concomitant]
     Active Substance: LEUPROLIDE ACETATE
     Dosage: UNK
     Dates: start: 20210810
  5. ZOLEDRONIC ACID [Concomitant]
     Active Substance: ZOLEDRONIC ACID
     Dosage: UNK
     Dates: start: 20201016
  6. ZOLEDRONIC ACID [Concomitant]
     Active Substance: ZOLEDRONIC ACID
     Dosage: UNK
     Dates: start: 20210205

REACTIONS (6)
  - Hormone-refractory prostate cancer [None]
  - Ureteral stent insertion [None]
  - Prostatic specific antigen increased [None]
  - Prostatic specific antigen increased [None]
  - Prostatic specific antigen increased [None]
  - Ureteral stent insertion [None]

NARRATIVE: CASE EVENT DATE: 20211014
